FAERS Safety Report 9977496 (Version 2)
Quarter: 2014Q1

REPORT INFORMATION
  Report Type: Report from Study
  Country: US (occurrence: US)
  Receive Date: 20140306
  Receipt Date: 20140306
  Transmission Date: 20141002
  Serious: No
  Sender: FDA-Public Use
  Company Number: US-ABBVIE-13P-163-1117250-00

PATIENT
  Age: 70 Year
  Sex: Male

DRUGS (8)
  1. HUMIRA [Suspect]
     Indication: CROHN^S DISEASE
     Dates: start: 20130412, end: 201305
  2. HUMIRA [Suspect]
     Dates: start: 20131001, end: 20131001
  3. HUMIRA [Suspect]
     Dates: start: 20131015, end: 20131015
  4. HUMIRA [Suspect]
     Dates: start: 20131029
  5. FLOMAX [Concomitant]
     Indication: PROSTATIC DISORDER
  6. TOPROL [Concomitant]
     Indication: HYPERTENSION
  7. PROBIOTICS [Concomitant]
     Indication: CROHN^S DISEASE
  8. PROBIOTICS [Concomitant]
     Indication: COLITIS

REACTIONS (4)
  - Ocular hyperaemia [Not Recovered/Not Resolved]
  - Eye swelling [Not Recovered/Not Resolved]
  - Clostridium difficile infection [Not Recovered/Not Resolved]
  - Rash macular [Not Recovered/Not Resolved]
